FAERS Safety Report 19390689 (Version 1)
Quarter: 2021Q2

REPORT INFORMATION
  Report Type: Spontaneous
  Country: FR (occurrence: FR)
  Receive Date: 20210608
  Receipt Date: 20210608
  Transmission Date: 20210717
  Serious: Yes (Other)
  Sender: FDA-Public Use
  Company Number: FR-SLATE RUN PHARMACEUTICALS-21FR000514

PATIENT

DRUGS (2)
  1. VANCOMYCIN HYDROCHLORIDE USP [Suspect]
     Active Substance: VANCOMYCIN HYDROCHLORIDE
     Indication: ENTEROCOCCAL INFECTION
  2. VANCOMYCIN HYDROCHLORIDE USP [Suspect]
     Active Substance: VANCOMYCIN HYDROCHLORIDE
     Indication: ENTEROBACTER INFECTION
     Dosage: 3000 MILLIGRAM, QD
     Route: 042

REACTIONS (9)
  - Cutaneous calcification [Recovered/Resolved]
  - Infusion site extravasation [Recovered/Resolved]
  - Prescribed overdose [Recovered/Resolved]
  - Calciphylaxis [Recovered/Resolved]
  - Soft tissue necrosis [Recovered/Resolved]
  - Skin toxicity [Recovered/Resolved]
  - Infusion site calcification [Recovered/Resolved]
  - Drug level increased [Unknown]
  - Skin necrosis [Recovered/Resolved]
